FAERS Safety Report 14291038 (Version 5)
Quarter: 2018Q4

REPORT INFORMATION
  Report Type: Report from Study
  Country: US (occurrence: US)
  Receive Date: 20171215
  Receipt Date: 20181217
  Transmission Date: 20190204
  Serious: Yes (Hospitalization)
  Sender: FDA-Public Use
  Company Number: US-EISAI MEDICAL RESEARCH-EC-2017-031682

PATIENT
  Age: 61 Year
  Sex: Female
  Weight: 63.8 kg

DRUGS (23)
  1. VENTOLIN [Concomitant]
     Active Substance: ALBUTEROL SULFATE
  2. LASIX [Concomitant]
     Active Substance: FUROSEMIDE
  3. LENVATINIB [Suspect]
     Active Substance: LENVATINIB
     Route: 048
     Dates: start: 20170906, end: 20170925
  4. LENVATINIB [Suspect]
     Active Substance: LENVATINIB
     Route: 048
     Dates: start: 20180320, end: 20180724
  5. LENVATINIB [Suspect]
     Active Substance: LENVATINIB
     Indication: RENAL CELL CARCINOMA
     Route: 048
     Dates: start: 20170613, end: 20170905
  6. CALCIUM CARB/VIT D3/MINERALS [Concomitant]
  7. COLACE [Concomitant]
     Active Substance: DOCUSATE SODIUM
  8. COMPAZINE [Concomitant]
     Active Substance: PROCHLORPERAZINE MALEATE
  9. PEMBROLIZUMAB. [Suspect]
     Active Substance: PEMBROLIZUMAB
     Indication: RENAL CELL CARCINOMA
     Route: 041
     Dates: start: 20170613, end: 20170905
  10. SYNTHROID [Concomitant]
     Active Substance: LEVOTHYROXINE SODIUM
  11. IMODIUM A-D [Concomitant]
     Active Substance: LOPERAMIDE HYDROCHLORIDE
  12. LENVATINIB [Suspect]
     Active Substance: LENVATINIB
     Route: 048
     Dates: start: 20171205, end: 20171219
  13. LENVATINIB [Suspect]
     Active Substance: LENVATINIB
     Route: 048
     Dates: start: 20171226, end: 20180319
  14. PRINZIDE,ZESTORETIC [Concomitant]
  15. ZOMETA [Concomitant]
     Active Substance: ZOLEDRONIC ACID
  16. ROXICODONE [Concomitant]
     Active Substance: OXYCODONE HYDROCHLORIDE
  17. LENVATINIB [Suspect]
     Active Substance: LENVATINIB
     Route: 048
     Dates: start: 20171003, end: 20171130
  18. XANAX [Concomitant]
     Active Substance: ALPRAZOLAM
  19. DURAGESIC [Concomitant]
     Active Substance: FENTANYL
  20. MIRALAX [Concomitant]
     Active Substance: POLYETHYLENE GLYCOL 3350
  21. LENVATINIB [Suspect]
     Active Substance: LENVATINIB
     Route: 048
     Dates: start: 20180801, end: 20180904
  22. PEMBROLIZUMAB. [Suspect]
     Active Substance: PEMBROLIZUMAB
     Route: 041
     Dates: start: 20171024, end: 20171114
  23. MULTIVITAMIN [Concomitant]
     Active Substance: VITAMINS

REACTIONS (4)
  - Mental status changes [Recovered/Resolved]
  - Pneumonitis [Recovered/Resolved]
  - Hypoxia [Recovered/Resolved]
  - Haemoglobin increased [Recovered/Resolved]

NARRATIVE: CASE EVENT DATE: 20170926
